FAERS Safety Report 16868999 (Version 2)
Quarter: 2019Q3

REPORT INFORMATION
  Report Type: Spontaneous
  Country: US (occurrence: US)
  Receive Date: 20190930
  Receipt Date: 20190930
  Transmission Date: 20191005
  Serious: Yes (Other)
  Sender: FDA-Public Use
  Company Number: US-LEO PHARMA-325458

PATIENT
  Sex: Male

DRUGS (1)
  1. PICATO [Suspect]
     Active Substance: INGENOL MEBUTATE
     Indication: PRECANCEROUS SKIN LESION
     Dosage: BACK OF HEAD, PALM SIZED AREA, WHERE FRONT OF SCALP MEETS THE BACK, ABOUT 3INCHES BY 4 INCHES
     Route: 061
     Dates: start: 20190918, end: 20190920

REACTIONS (6)
  - Condition aggravated [Not Recovered/Not Resolved]
  - Application site mass [Not Recovered/Not Resolved]
  - Application site exfoliation [Not Recovered/Not Resolved]
  - Product administration error [Unknown]
  - Precancerous skin lesion [Not Recovered/Not Resolved]
  - Application site scab [Not Recovered/Not Resolved]
